FAERS Safety Report 21125255 (Version 1)
Quarter: 2022Q3

REPORT INFORMATION
  Report Type: Spontaneous
  Country: US (occurrence: None)
  Receive Date: 20220725
  Receipt Date: 20220725
  Transmission Date: 20221027
  Serious: Yes (Hospitalization)
  Sender: FDA-Public Use
  Company Number: None

PATIENT
  Sex: Female

DRUGS (1)
  1. XELJANZ XR [Suspect]
     Active Substance: TOFACITINIB CITRATE
     Indication: Rheumatoid arthritis
     Dosage: 11 MG ORAL?TAKE 1 TABLET (11 MG) BY MOUTH EVERY DAY?
     Route: 048
     Dates: start: 20220405

REACTIONS (2)
  - Fatigue [None]
  - Infection [None]
